FAERS Safety Report 4556158-7 (Version None)
Quarter: 2005Q1

REPORT INFORMATION
  Report Type: 
  Country: None (occurrence: None)
  Receive Date: 20050119
  Receipt Date: 20050110
  Transmission Date: 20050727
  Serious: Yes (Other)
  Sender: FDA-Public Use
  Company Number: GB-ABBOTT-05P-167-0286859-00

PATIENT
  Sex: Male

DRUGS (8)
  1. FERROGRAD C [Suspect]
     Indication: DRUG EXPOSURE DURING PREGNANCY
  2. SPIRONOLACTONE [Suspect]
     Indication: DRUG EXPOSURE DURING PREGNANCY
  3. PENICILLAMINE [Suspect]
     Indication: DRUG EXPOSURE DURING PREGNANCY
  4. FUROSEMIDE [Suspect]
     Indication: DRUG EXPOSURE DURING PREGNANCY
  5. DEXAMETHASONE [Suspect]
     Indication: DRUG EXPOSURE DURING PREGNANCY
  6. POTASSIUM CHLORIDE [Suspect]
     Indication: DRUG EXPOSURE DURING PREGNANCY
  7. ACETAMINOPHEN [Suspect]
     Indication: DRUG EXPOSURE DURING PREGNANCY
  8. ACETYLSALICYLIC ACID SRT [Suspect]
     Indication: DRUG EXPOSURE DURING PREGNANCY

REACTIONS (1)
  - ADRENOGENITAL SYNDROME [None]
